FAERS Safety Report 5597989-4 (Version None)
Quarter: 2008Q1

REPORT INFORMATION
  Report Type: 
  Country: None (occurrence: None)
  Receive Date: 20080122
  Receipt Date: 20080104
  Transmission Date: 20080703
  Serious: Yes (Death, Life-Threatening, Hospitalization)
  Sender: FDA-Public Use
  Company Number: FR-BAYER-200717411GPV

PATIENT
  Age: 76 Year
  Sex: Male

DRUGS (12)
  1. CIFLOX (CIPROFLOXACIN) [Suspect]
     Indication: URINARY TRACT INFECTION
     Route: 048
     Dates: start: 20060627, end: 20060713
  2. PREVISCAN (FLUINDIONE) [Suspect]
     Indication: ARRHYTHMIA
     Dosage: TOTAL DAILY DOSE: 0.75 MG
     Route: 048
     Dates: start: 20060705, end: 20060712
  3. PREVISCAN (FLUINDIONE) [Suspect]
     Dosage: TOTAL DAILY DOSE: 0.5 MG
     Route: 048
     Dates: start: 20060703
  4. PREVISCAN (FLUINDIONE) [Suspect]
     Dosage: TOTAL DAILY DOSE: 0.25 MG
     Route: 048
     Dates: start: 20060628
  5. PREVISCAN (FLUINDIONE) [Suspect]
     Dosage: TOTAL DAILY DOSE: 20 MG
     Route: 048
     Dates: end: 20060626
  6. CONTRAMAL (TRAMADOL) [Suspect]
     Indication: DRUG USE FOR UNKNOWN INDICATION
     Route: 048
     Dates: start: 20060624, end: 20060721
  7. CORDARONE [Suspect]
     Indication: ATRIAL FIBRILLATION
     Route: 055
     Dates: end: 20060721
  8. ATROVENT [Concomitant]
     Indication: DRUG USE FOR UNKNOWN INDICATION
     Route: 055
     Dates: end: 20060723
  9. BRICANYL [Concomitant]
     Indication: DRUG USE FOR UNKNOWN INDICATION
     Route: 065
     Dates: end: 20060723
  10. ESIDRIX [Concomitant]
     Indication: DRUG USE FOR UNKNOWN INDICATION
     Route: 048
     Dates: end: 20060723
  11. LASIX [Concomitant]
     Indication: DRUG USE FOR UNKNOWN INDICATION
     Route: 048
     Dates: end: 20060723
  12. INSULATARD (INSULIN) [Concomitant]
     Indication: DRUG USE FOR UNKNOWN INDICATION
     Route: 058
     Dates: end: 20060723

REACTIONS (6)
  - ANAEMIA [None]
  - HYPOVOLAEMIC SHOCK [None]
  - INFUSION SITE HAEMORRHAGE [None]
  - MUSCLE HAEMORRHAGE [None]
  - RESPIRATORY DISTRESS [None]
  - WOUND HAEMORRHAGE [None]
